FAERS Safety Report 5646284-3 (Version None)
Quarter: 2008Q1

REPORT INFORMATION
  Report Type: 
  Country: None (occurrence: None)
  Receive Date: 20080303
  Receipt Date: 20071115
  Transmission Date: 20080703
  Serious: No
  Sender: FDA-Public Use
  Company Number: US-BAYER-200714764NA

PATIENT
  Age: 51 Year
  Sex: Female
  Weight: 73 kg

DRUGS (1)
  1. MIRENA [Suspect]
     Indication: MENORRHAGIA
     Route: 015

REACTIONS (4)
  - ABDOMINAL PAIN LOWER [None]
  - BACK PAIN [None]
  - HEADACHE [None]
  - PROCEDURAL PAIN [None]
